FAERS Safety Report 21377830 (Version 2)
Quarter: 2023Q2

REPORT INFORMATION
  Report Type: Report from Study
  Country: US (occurrence: US)
  Receive Date: 20220926
  Receipt Date: 20230503
  Transmission Date: 20230722
  Serious: Yes (Hospitalization, Other)
  Sender: FDA-Public Use
  Company Number: US-ABBVIE-4130127

PATIENT
  Sex: Male
  Weight: 79 kg

DRUGS (6)
  1. HUMIRA [Suspect]
     Active Substance: ADALIMUMAB
     Indication: Crohn^s disease
     Route: 058
     Dates: start: 20210919, end: 20220813
  2. HUMIRA [Suspect]
     Active Substance: ADALIMUMAB
     Route: 058
     Dates: start: 2012, end: 2013
  3. HUMIRA [Suspect]
     Active Substance: ADALIMUMAB
     Route: 058
     Dates: start: 2014
  4. HUMIRA [Suspect]
     Active Substance: ADALIMUMAB
     Route: 058
  5. PEPCID [Concomitant]
     Active Substance: FAMOTIDINE
     Indication: Gastrooesophageal reflux disease
  6. Moderna [Concomitant]
     Indication: COVID-19 immunisation
     Dosage: DOSE- ONE IN ONE DAY.
     Route: 030

REACTIONS (12)
  - Intestinal obstruction [Recovered/Resolved]
  - Scar [Recovered/Resolved with Sequelae]
  - Sneezing [Recovered/Resolved]
  - Gastrooesophageal reflux disease [Recovering/Resolving]
  - Abdominal pain [Recovered/Resolved]
  - Therapeutic product effect incomplete [Recovered/Resolved]
  - COVID-19 [Recovered/Resolved]
  - Sneezing [Recovered/Resolved]
  - COVID-19 [Recovered/Resolved]
  - Intestinal operation [Unknown]
  - Haemorrhoid operation [Unknown]
  - Unevaluable event [Unknown]

NARRATIVE: CASE EVENT DATE: 20130101
